FAERS Safety Report 22918487 (Version 5)
Quarter: 2023Q4

REPORT INFORMATION
  Report Type: Report from Study
  Country: US (occurrence: US)
  Receive Date: 20230907
  Receipt Date: 20231128
  Transmission Date: 20240110
  Serious: No
  Sender: FDA-Public Use
  Company Number: US-002147023-NVSC2023US193868

PATIENT
  Sex: Male
  Weight: 200 kg

DRUGS (2)
  1. TRIAMCINOLONE [Suspect]
     Active Substance: TRIAMCINOLONE
     Indication: Psoriasis
     Dosage: UNK
     Route: 065
  2. COSENTYX [Suspect]
     Active Substance: SECUKINUMAB
     Indication: Psoriasis
     Dosage: 300 MG, QMO
     Route: 065

REACTIONS (7)
  - Cough [Unknown]
  - Scratch [Unknown]
  - Skin burning sensation [Unknown]
  - Pruritus [Unknown]
  - Drug ineffective [Unknown]
  - Paraesthesia [Unknown]
  - Insomnia [Unknown]
